FAERS Safety Report 24056474 (Version 1)
Quarter: 2024Q3

REPORT INFORMATION
  Report Type: Spontaneous
  Country: US (occurrence: US)
  Receive Date: 20240705
  Receipt Date: 20240705
  Transmission Date: 20241017
  Serious: No
  Sender: DR REDDYS
  Company Number: US-E2BLSMVVAL-SPO/USA/24/0009285

PATIENT
  Sex: Female

DRUGS (2)
  1. FINGOLIMOD HYDROCHLORIDE [Suspect]
     Active Substance: FINGOLIMOD HYDROCHLORIDE
     Indication: Product used for unknown indication
     Route: 065
  2. GILENYA [Suspect]
     Active Substance: FINGOLIMOD HYDROCHLORIDE
     Indication: Product used for unknown indication
     Route: 065

REACTIONS (14)
  - Fall [Unknown]
  - Diarrhoea [Unknown]
  - Cough [Unknown]
  - Dry mouth [Unknown]
  - Chills [Unknown]
  - Pyrexia [Unknown]
  - Headache [Unknown]
  - Fatigue [Unknown]
  - Chest discomfort [Unknown]
  - Back pain [Unknown]
  - Product substitution issue [Unknown]
  - Therapeutic response decreased [Unknown]
  - Visual impairment [Unknown]
  - Movement disorder [Unknown]
